FAERS Safety Report 8287726-7 (Version None)
Quarter: 2012Q2

REPORT INFORMATION
  Report Type: 
  Country: None (occurrence: None)
  Receive Date: 20120416
  Receipt Date: 20120406
  Transmission Date: 20120825
  Serious: Yes (Hospitalization, Other)
  Sender: FDA-Public Use
  Company Number: US-BAYER-2011-119597

PATIENT
  Age: 29 Year
  Sex: Female
  Weight: 90.703 kg

DRUGS (7)
  1. SINGULAIR [Concomitant]
  2. ZOLOFT [Concomitant]
  3. YAZ [Suspect]
     Dosage: UNK
     Route: 048
     Dates: start: 20070201, end: 20080101
  4. NEXIUM [Concomitant]
  5. SYNTHROID [Concomitant]
  6. ALLEGRA-D 12 HOUR [Concomitant]
  7. CIPROFLOXACIN HCL [Concomitant]

REACTIONS (9)
  - PULMONARY EMBOLISM [None]
  - NEPHROTIC SYNDROME [None]
  - PAIN [None]
  - ANXIETY [None]
  - EMOTIONAL DISTRESS [None]
  - SWELLING [None]
  - THROMBOSIS [None]
  - WEIGHT FLUCTUATION [None]
  - GENERAL PHYSICAL HEALTH DETERIORATION [None]
